FAERS Safety Report 6601233-6 (Version None)
Quarter: 2010Q1

REPORT INFORMATION
  Report Type: 
  Country: None (occurrence: None)
  Receive Date: 20100224
  Receipt Date: 20100224
  Transmission Date: 20100710
  Serious: Yes (Hospitalization, Other)
  Sender: FDA-Public Use
  Company Number: None

PATIENT
  Age: 73 Year
  Sex: Male
  Weight: 65.7716 kg

DRUGS (1)
  1. NITROFURAN, MCR 50 MG, ? MANUFACTURER (SAFEWAY PRESCRIPTION (GENERIC F [Suspect]
     Indication: PROPHYLAXIS URINARY TRACT INFECTION
     Dosage: 50MG TWICE DAILY ORAL
     Route: 048
     Dates: start: 20090322, end: 20090325

REACTIONS (3)
  - BALANCE DISORDER [None]
  - NAUSEA [None]
  - VOMITING [None]
